FAERS Safety Report 19213226 (Version 1)
Quarter: 2021Q2

REPORT INFORMATION
  Report Type: Report from Study
  Country: US (occurrence: US)
  Receive Date: 20210504
  Receipt Date: 20210504
  Transmission Date: 20210717
  Serious: Yes (Other)
  Sender: FDA-Public Use
  Company Number: US-TAKEDA-2020TUS025801

PATIENT
  Sex: Male

DRUGS (5)
  1. LETERMOVIR [Concomitant]
     Active Substance: LETERMOVIR
     Dosage: UNK
     Route: 065
  2. PONATINIB [Suspect]
     Active Substance: PONATINIB
     Dosage: 30 MILLIGRAM, QD
     Route: 048
     Dates: start: 202005
  3. VANCOCIN [Concomitant]
     Active Substance: VANCOMYCIN HYDROCHLORIDE
     Dosage: UNK
     Route: 065
  4. PONATINIB [Suspect]
     Active Substance: PONATINIB
     Indication: ACUTE LYMPHOCYTIC LEUKAEMIA
     Dosage: 30 MILLIGRAM, QD
     Route: 048
  5. PONATINIB [Suspect]
     Active Substance: PONATINIB
     Dosage: 15 MILLIGRAM, QD
     Route: 048

REACTIONS (16)
  - Abdominal pain [Not Recovered/Not Resolved]
  - Headache [Not Recovered/Not Resolved]
  - Product dose omission issue [Unknown]
  - Dry skin [Unknown]
  - Hypertension [Unknown]
  - Erectile dysfunction [Unknown]
  - Fatigue [Unknown]
  - Insomnia [Unknown]
  - Rash [Unknown]
  - Muscular weakness [Unknown]
  - Constipation [Unknown]
  - Skin discolouration [Unknown]
  - Nausea [Unknown]
  - Blood insulin increased [Unknown]
  - Arthralgia [Unknown]
  - Restless legs syndrome [Unknown]
